FAERS Safety Report 24859553 (Version 1)
Quarter: 2025Q1

REPORT INFORMATION
  Report Type: Spontaneous
  Country: US (occurrence: US)
  Receive Date: 20250119
  Receipt Date: 20250119
  Transmission Date: 20250409
  Serious: No
  Sender: SANOFI AVENTIS
  Company Number: US-SA-2025SA015789

PATIENT
  Age: 56 Year

DRUGS (1)
  1. LANTUS [Suspect]
     Active Substance: INSULIN GLARGINE
     Indication: Blood glucose increased
     Dosage: 50U BID ON APPLICATION AND LANTUS VIALS 20U QAM AND 30U QPM ON ATTACHED RX
     Route: 058

REACTIONS (1)
  - Off label use [Unknown]
